FAERS Safety Report 6604808-3 (Version None)
Quarter: 2010Q1

REPORT INFORMATION
  Report Type: 
  Country: None (occurrence: None)
  Receive Date: 20100226
  Receipt Date: 20100224
  Transmission Date: 20100710
  Serious: Yes (Other)
  Sender: FDA-Public Use
  Company Number: FR-ROCHE-687352

PATIENT
  Age: 25 Year
  Sex: Male

DRUGS (1)
  1. TAMIFLU [Suspect]
     Indication: RESPIRATORY DISORDER
     Dosage: ADDITIONAL INDICATION: FEVER, DOSE: SINGLE DOSE
     Route: 065

REACTIONS (1)
  - DELIRIUM [None]
